FAERS Safety Report 5713442-9 (Version None)
Quarter: 2008Q2

REPORT INFORMATION
  Report Type: 
  Country: None (occurrence: None)
  Receive Date: 20080422
  Receipt Date: 20080421
  Transmission Date: 20081010
  Serious: Yes (Death, Hospitalization)
  Sender: FDA-Public Use
  Company Number: JP-BOEHRINGER INGELHEIM GMBH, GERMANY-2008-BP-06229NB

PATIENT
  Sex: Male
  Weight: 52 kg

DRUGS (6)
  1. MICARDIS [Suspect]
     Indication: HYPERTENSION
     Route: 048
     Dates: start: 20070316, end: 20071216
  2. LANSOPRAZOLE [Concomitant]
     Indication: PROPHYLAXIS
     Route: 048
  3. PANALDINE [Concomitant]
     Route: 048
  4. ASPIRIN [Concomitant]
     Route: 048
  5. LASIX [Concomitant]
     Route: 048
  6. PANTOSIN [Concomitant]
     Route: 048

REACTIONS (2)
  - CARDIAC FAILURE [None]
  - CEREBRAL HAEMORRHAGE [None]
